FAERS Safety Report 9629230 (Version 3)
Quarter: 2013Q4

REPORT INFORMATION
  Report Type: Spontaneous
  Country: US (occurrence: US)
  Receive Date: 20131017
  Receipt Date: 20131030
  Transmission Date: 20140711
  Serious: Yes (Other)
  Sender: FDA-Public Use
  Company Number: US-JNJFOC-20130912462

PATIENT
  Age: 73 Year
  Sex: Female
  Weight: 127.01 kg

DRUGS (2)
  1. XARELTO [Suspect]
     Indication: PULMONARY EMBOLISM
     Route: 048
     Dates: start: 20130731, end: 20130812
  2. XARELTO [Suspect]
     Indication: PULMONARY EMBOLISM
     Route: 048

REACTIONS (8)
  - Pyrexia [Recovered/Resolved]
  - Dyspnoea [Recovered/Resolved]
  - Burning sensation [Recovered/Resolved]
  - Swelling face [Recovered/Resolved]
  - Eye swelling [Recovered/Resolved]
  - Erythema [Recovered/Resolved]
  - Dysphagia [Recovered/Resolved]
  - Hypersensitivity [Recovered/Resolved]
